FAERS Safety Report 25614145 (Version 1)
Quarter: 2025Q3

REPORT INFORMATION
  Report Type: Report from Study
  Country: US (occurrence: US)
  Receive Date: 20250728
  Receipt Date: 20250728
  Transmission Date: 20251020
  Serious: Yes (Hospitalization, Other)
  Sender: MALLINCKRODT
  Company Number: US-MALLINCKRODT-MNK202305294

PATIENT
  Age: 44 Year
  Sex: Female
  Weight: 160 kg

DRUGS (2)
  1. CORTICOTROPIN [Suspect]
     Active Substance: CORTICOTROPIN
     Indication: Polyarthritis
     Route: 058
     Dates: start: 20230922
  2. PREDNISONE [Concomitant]
     Active Substance: PREDNISONE
     Indication: Product used for unknown indication

REACTIONS (6)
  - Respiratory failure [Unknown]
  - Immunosuppression [Not Recovered/Not Resolved]
  - Uterine dilation and curettage [Unknown]
  - Pneumonia [Not Recovered/Not Resolved]
  - Heart rate abnormal [Unknown]
  - Therapeutic product effect incomplete [Not Recovered/Not Resolved]

NARRATIVE: CASE EVENT DATE: 20230101
